FAERS Safety Report 7393035-0 (Version None)
Quarter: 2011Q2

REPORT INFORMATION
  Report Type: 
  Country: None (occurrence: None)
  Receive Date: 20110404
  Receipt Date: 20110331
  Transmission Date: 20111010
  Serious: Yes (Life-Threatening)
  Sender: FDA-Public Use
  Company Number: JP-ASTRAZENECA-2011SE18463

PATIENT
  Age: 45 Year
  Sex: Male

DRUGS (2)
  1. XYLOCAINE VISCOUS [Suspect]
     Indication: LOCAL ANAESTHESIA
     Route: 049
     Dates: start: 20110111, end: 20110111
  2. PENTAZOCINE LACTATE [Suspect]
     Route: 058

REACTIONS (1)
  - ANAPHYLACTIC SHOCK [None]
